FAERS Safety Report 5374842-2 (Version None)
Quarter: 2007Q2

REPORT INFORMATION
  Report Type: 
  Country: None (occurrence: None)
  Receive Date: 20070629
  Receipt Date: 20070622
  Transmission Date: 20071010
  Serious: Yes (Other)
  Sender: FDA-Public Use
  Company Number: B0472449A

PATIENT
  Age: 53 Year
  Sex: Female
  Weight: 103 kg

DRUGS (14)
  1. FLUTIDE DISKUS [Suspect]
     Indication: ASTHMA
     Route: 055
     Dates: start: 19990101
  2. SEREVENT [Concomitant]
     Indication: ASTHMA
     Dosage: 100MCG PER DAY
     Route: 055
     Dates: start: 20070401
  3. PREDONINE [Concomitant]
     Route: 048
     Dates: start: 19990101, end: 20040101
  4. JUVELA N [Concomitant]
     Indication: HYPERTENSION
     Dosage: 400MG PER DAY
     Route: 048
  5. EPADEL S [Concomitant]
     Dosage: 1200MG PER DAY
     Route: 048
  6. RENIVACE [Concomitant]
     Indication: HYPERTENSION
     Dosage: 5MG PER DAY
     Route: 048
  7. NORVASC [Concomitant]
     Indication: HYPERTENSION
     Dosage: 2.5MG PER DAY
     Route: 048
  8. OMEPRAL [Concomitant]
     Dosage: 20MG PER DAY
     Route: 048
  9. MARZULENE-S [Concomitant]
     Indication: GASTRITIS
     Dosage: 1.5MG PER DAY
     Route: 048
  10. GASCON [Concomitant]
     Indication: ABDOMINAL SYMPTOM
     Dosage: 120MG PER DAY
     Route: 048
  11. CELTECT [Concomitant]
     Dosage: 60MG PER DAY
     Route: 048
  12. SINGULAIR [Concomitant]
     Indication: ASTHMA
     Dosage: 10MG PER DAY
     Route: 048
  13. AMOBAN [Concomitant]
     Indication: INSOMNIA
     Route: 048
     Dates: end: 20070524
  14. TETRAMIDE [Concomitant]
     Indication: DEPRESSION
     Dosage: 40MG PER DAY
     Route: 048

REACTIONS (4)
  - ADRENAL INSUFFICIENCY [None]
  - BLOOD CORTICOTROPHIN DECREASED [None]
  - BLOOD CORTISOL DECREASED [None]
  - HYPOPITUITARISM [None]
